FAERS Safety Report 6112622-0 (Version None)
Quarter: 2009Q1

REPORT INFORMATION
  Report Type: 
  Country: None (occurrence: None)
  Receive Date: 20090312
  Receipt Date: 20090305
  Transmission Date: 20090719
  Serious: Yes (Other)
  Sender: FDA-Public Use
  Company Number: US-ELI_LILLY_AND_COMPANY-US200903001512

PATIENT
  Age: 36 Year
  Sex: Female

DRUGS (3)
  1. XIGRIS [Suspect]
     Dosage: UNK, UNK
     Dates: start: 20090225, end: 20090101
  2. XIGRIS [Suspect]
     Dates: start: 20090304, end: 20090304
  3. BLOOD AND RELATED PRODUCTS [Concomitant]
     Indication: PLATELET COUNT DECREASED
     Dates: start: 20090101, end: 20090101

REACTIONS (1)
  - THROMBOCYTOPENIA [None]
